FAERS Safety Report 6789142-3 (Version None)
Quarter: 2010Q2

REPORT INFORMATION
  Report Type: 
  Country: None (occurrence: None)
  Receive Date: 20100623
  Receipt Date: 20080624
  Transmission Date: 20101027
  Serious: No
  Sender: FDA-Public Use
  Company Number: US-PFIZER INC-2008053428

PATIENT
  Sex: Female
  Weight: 55.34 kg

DRUGS (5)
  1. DEPO-SUBQ PROVERA 104 [Suspect]
     Indication: CONTRACEPTION
     Route: 058
     Dates: start: 20071114, end: 20071114
  2. NO PRODUCT FOUND [Suspect]
  3. MONTELUKAST [Concomitant]
  4. VALTREX [Concomitant]
     Dosage: 2 TABLETS  TWICE DAILY
  5. ALBUTEROL [Concomitant]
     Route: 055

REACTIONS (2)
  - INCORRECT ROUTE OF DRUG ADMINISTRATION [None]
  - WEIGHT INCREASED [None]
